FAERS Safety Report 8089475-7 (Version None)
Quarter: 2012Q1

REPORT INFORMATION
  Report Type: 
  Country: None (occurrence: None)
  Receive Date: 20120128
  Receipt Date: 20110628
  Transmission Date: 20120608
  Serious: No
  Sender: FDA-Public Use
  Company Number: US-ABBOTT-11P-163-0835015-00

PATIENT
  Age: 26 Year
  Sex: Male

DRUGS (2)
  1. ZOLOFT [Concomitant]
     Indication: DEPRESSION
  2. HUMIRA [Suspect]
     Indication: PSORIATIC ARTHROPATHY
     Dates: start: 20110504

REACTIONS (8)
  - PAIN IN EXTREMITY [None]
  - INGROWING NAIL [None]
  - STRESS [None]
  - PRESYNCOPE [None]
  - NAIL OPERATION [None]
  - LOCALISED INFECTION [None]
  - DRUG INEFFECTIVE [None]
  - PRURITUS [None]
